FAERS Safety Report 9886902 (Version 1)
Quarter: 2014Q1

REPORT INFORMATION
  Report Type: Spontaneous
  Country: US (occurrence: US)
  Receive Date: 20140210
  Receipt Date: 20140210
  Transmission Date: 20141002
  Serious: Yes (Hospitalization, Other)
  Sender: FDA-Public Use
  Company Number: US-009507513-1402USA003730

PATIENT
  Sex: Female

DRUGS (2)
  1. FOSAMAX [Suspect]
     Indication: BONE DISORDER
     Route: 048
  2. FORTEO [Concomitant]
     Indication: OSTEOPOROSIS
     Dosage: INJECT HERSELF EVERY NIGHT
     Dates: start: 2008

REACTIONS (9)
  - Fall [Unknown]
  - Hip fracture [Unknown]
  - Fall [Unknown]
  - Movement disorder [Unknown]
  - Pelvic fracture [Unknown]
  - Hypertonic bladder [Unknown]
  - Visual impairment [Unknown]
  - Weight increased [Unknown]
  - Back pain [Unknown]
